FAERS Safety Report 15043321 (Version 1)
Quarter: 2018Q2

REPORT INFORMATION
  Report Type: Report from Study
  Country: DE (occurrence: DE)
  Receive Date: 20180621
  Receipt Date: 20180621
  Transmission Date: 20180711
  Serious: Yes (Congenital Anomaly)
  Sender: FDA-Public Use
  Company Number: DE-TEVA-2018-DE-909540

PATIENT

DRUGS (2)
  1. IODINE. [Concomitant]
     Active Substance: IODINE
     Dosage: THE MOTHER RECEIVED IODINE DURING 1-2 TRIMESTERS
     Route: 064
  2. SUMATRIPTAN. [Suspect]
     Active Substance: SUMATRIPTAN
     Indication: MIGRAINE
     Dosage: 0-17 WEEK OF GESTATION
     Route: 064

REACTIONS (2)
  - Maternal exposure during pregnancy [Unknown]
  - Renal aplasia [Unknown]
